FAERS Safety Report 9048290 (Version 1)
Quarter: 2013Q1

REPORT INFORMATION
  Report Type: Spontaneous
  Country: US (occurrence: US)
  Receive Date: 20130204
  Receipt Date: 20130204
  Transmission Date: 20140127
  Serious: No
  Sender: FDA-Public Use
  Company Number: US-AMGEN-USASP2013001750

PATIENT
  Age: 65 Year
  Sex: Male

DRUGS (3)
  1. ENBREL [Suspect]
     Indication: PSORIATIC ARTHROPATHY
     Dosage: 25 MG, 2 TIMES/WK
     Dates: start: 20020101
  2. CYTOTEC [Concomitant]
     Dosage: 200 MUG, UNK
  3. MYCOPHENOLATE [Concomitant]
     Dosage: 250 MG, UNK

REACTIONS (4)
  - Rhinorrhoea [Not Recovered/Not Resolved]
  - Headache [Unknown]
  - Pain [Unknown]
  - Chills [Not Recovered/Not Resolved]
